FAERS Safety Report 14568675 (Version 1)
Quarter: 2018Q1

REPORT INFORMATION
  Report Type: Spontaneous
  Country: US (occurrence: US)
  Receive Date: 20180218
  Receipt Date: 20180218
  Transmission Date: 20180509
  Serious: Yes (Death)
  Sender: FDA-Public Use
  Company Number: None

PATIENT
  Age: 69 Year
  Sex: Male
  Weight: 90 kg

DRUGS (2)
  1. BLACK 3KPLUS [Suspect]
     Active Substance: DIETARY SUPPLEMENT
  2. CIALIS [Suspect]
     Active Substance: TADALAFIL

REACTIONS (4)
  - Headache [None]
  - Subarachnoid haemorrhage [None]
  - Intracranial aneurysm [None]
  - Unresponsive to stimuli [None]

NARRATIVE: CASE EVENT DATE: 20180217
